FAERS Safety Report 5692185-4 (Version None)
Quarter: 2008Q2

REPORT INFORMATION
  Report Type: 
  Country: None (occurrence: None)
  Receive Date: 20080402
  Receipt Date: 20080326
  Transmission Date: 20081010
  Serious: Yes (Other)
  Sender: FDA-Public Use
  Company Number: B0510055A

PATIENT
  Age: 41 Year
  Sex: Female
  Weight: 103 kg

DRUGS (5)
  1. MALARONE [Suspect]
     Indication: MALARIA PROPHYLAXIS
     Dosage: 1TAB CUMULATIVE DOSE
     Route: 048
     Dates: start: 20080226
  2. SYMBICORT [Concomitant]
     Route: 055
  3. VENTOLIN [Concomitant]
     Route: 055
  4. FLUOXETINE [Concomitant]
  5. OMEPRAZOLE [Concomitant]

REACTIONS (1)
  - ASTHMA [None]
